FAERS Safety Report 23653931 (Version 1)
Quarter: 2024Q1

REPORT INFORMATION
  Report Type: Spontaneous
  Country: HR (occurrence: HR)
  Receive Date: 20240320
  Receipt Date: 20240320
  Transmission Date: 20240410
  Serious: Yes (Other)
  Sender: FDA-Public Use
  Company Number: None

PATIENT
  Age: 32 Year
  Sex: Female

DRUGS (2)
  1. EBASTINE [Suspect]
     Active Substance: EBASTINE
     Indication: Product used for unknown indication
     Dosage: POPILA 15TBL AERIUSA
     Route: 048
     Dates: start: 20240102, end: 20240102
  2. METHOTREXATE [Suspect]
     Active Substance: METHOTREXATE
     Indication: Product used for unknown indication
     Dosage: 50.000MG QD
     Route: 048
     Dates: start: 20240102, end: 20240102

REACTIONS (3)
  - Somnolence [Unknown]
  - Suicide attempt [Unknown]
  - Intentional overdose [Unknown]

NARRATIVE: CASE EVENT DATE: 20240102
